FAERS Safety Report 5797629-5 (Version None)
Quarter: 2008Q2

REPORT INFORMATION
  Report Type: 
  Country: None (occurrence: None)
  Receive Date: 20080630
  Receipt Date: 20080612
  Transmission Date: 20081010
  Serious: Yes (Hospitalization)
  Sender: FDA-Public Use
  Company Number: ALA_00077_2008

PATIENT
  Sex: Female

DRUGS (1)
  1. REGLAN [Suspect]
     Indication: GASTROOESOPHAGEAL REFLUX DISEASE
     Dosage: (10 MG QID)
     Dates: start: 20050601, end: 20060905

REACTIONS (28)
  - ACTIVITIES OF DAILY LIVING IMPAIRED [None]
  - AGITATION [None]
  - AKATHISIA [None]
  - AMNESIA [None]
  - ANXIETY [None]
  - APATHY [None]
  - CHEST INJURY [None]
  - CONTUSION [None]
  - DEPRESSION [None]
  - DIZZINESS [None]
  - FATIGUE [None]
  - FEELING JITTERY [None]
  - GUN SHOT WOUND [None]
  - HAEMORRHAGE [None]
  - HALLUCINATION, AUDITORY [None]
  - HALLUCINATION, VISUAL [None]
  - HYDROPNEUMOTHORAX [None]
  - HYPERHIDROSIS [None]
  - INTENTIONAL SELF-INJURY [None]
  - NERVOUSNESS [None]
  - OBSESSIVE THOUGHTS [None]
  - RESTLESS LEGS SYNDROME [None]
  - RESTLESSNESS [None]
  - SUICIDE ATTEMPT [None]
  - SWELLING [None]
  - TARDIVE DYSKINESIA [None]
  - TREMOR [None]
  - WEIGHT DECREASED [None]
